FAERS Safety Report 16478282 (Version 1)
Quarter: 2019Q2

REPORT INFORMATION
  Report Type: Spontaneous
  Country: ES (occurrence: ES)
  Receive Date: 20190626
  Receipt Date: 20190626
  Transmission Date: 20190711
  Serious: Yes (Other)
  Sender: FDA-Public Use
  Company Number: ES-PFIZER INC-2019267862

PATIENT
  Age: 27 Year

DRUGS (6)
  1. ZONISAMIDE. [Concomitant]
     Active Substance: ZONISAMIDE
     Dosage: UNK
  2. TOPIRAMATE. [Concomitant]
     Active Substance: TOPIRAMATE
     Dosage: UNK
  3. VIMPAT [Suspect]
     Active Substance: LACOSAMIDE
     Dosage: UNK (400)
  4. CARBAMAZEPINE. [Concomitant]
     Active Substance: CARBAMAZEPINE
     Dosage: UNK
  5. CLOZAPINE. [Concomitant]
     Active Substance: CLOZAPINE
     Dosage: UNK
  6. LEVETIRACETAM. [Suspect]
     Active Substance: LEVETIRACETAM
     Dosage: UNK (3000)

REACTIONS (4)
  - Irritability [Unknown]
  - Seizure [Unknown]
  - Product dose omission [Unknown]
  - Affective disorder [Unknown]
